FAERS Safety Report 9060142 (Version 1)
Quarter: 2013Q1

REPORT INFORMATION
  Report Type: Spontaneous
  Country: FR (occurrence: FR)
  Receive Date: 20130212
  Receipt Date: 20130212
  Transmission Date: 20140127
  Serious: Yes (Other)
  Sender: FDA-Public Use
  Company Number: PHHY2013FR013435

PATIENT
  Age: 89 Year
  Sex: Female

DRUGS (10)
  1. AMOXICILLIN + CLAVULANATE POTASSIUM [Suspect]
     Indication: URINARY TRACT INFECTION
     Route: 048
     Dates: start: 20120529, end: 20120601
  2. PREVISCAN [Interacting]
     Dosage: 0.75 DF, PER DAY
     Route: 048
     Dates: end: 20120604
  3. PREVISCAN [Interacting]
     Dates: start: 20120609
  4. TAZOCILLINE [Interacting]
     Indication: URINARY TRACT INFECTION
     Dosage: 1 DF, 1 DAY
     Route: 048
     Dates: start: 20120601, end: 20120603
  5. CIPROFLOXACIN [Interacting]
     Indication: URINARY TRACT INFECTION
     Dosage: 0.5 DF, PER DAY
     Route: 048
     Dates: start: 20120601, end: 20120603
  6. ATARAX [Concomitant]
  7. SEROPLEX [Concomitant]
  8. DIFFU K [Concomitant]
  9. LASILIX [Concomitant]
  10. CARDENSIEL [Concomitant]

REACTIONS (3)
  - Gingival bleeding [Recovered/Resolved]
  - Haematuria [Recovered/Resolved]
  - International normalised ratio increased [Recovered/Resolved]
